FAERS Safety Report 13413324 (Version 1)
Quarter: 2017Q2

REPORT INFORMATION
  Report Type: Spontaneous
  Country: SG (occurrence: SG)
  Receive Date: 20170407
  Receipt Date: 20170407
  Transmission Date: 20170830
  Serious: Yes (Other)
  Sender: FDA-Public Use
  Company Number: SG-ASTRAZENECA-2017SE35410

PATIENT
  Age: 50 Year
  Sex: Female

DRUGS (2)
  1. OLAPARIB [Suspect]
     Active Substance: OLAPARIB
     Dosage: 400.0MG UNKNOWN
     Route: 048
     Dates: start: 20161001
  2. OLAPARIB [Suspect]
     Active Substance: OLAPARIB
     Dosage: 200.0MG UNKNOWN
     Route: 048

REACTIONS (1)
  - Blood count abnormal [Recovered/Resolved]

NARRATIVE: CASE EVENT DATE: 20161031
